FAERS Safety Report 23613781 (Version 2)
Quarter: 2024Q1

REPORT INFORMATION
  Report Type: Spontaneous
  Country: IT (occurrence: IT)
  Receive Date: 20240310
  Receipt Date: 20240321
  Transmission Date: 20240409
  Serious: Yes (Other)
  Sender: FDA-Public Use
  Company Number: IT-MINISAL02-972321

PATIENT
  Age: 61 Year
  Sex: Male

DRUGS (3)
  1. OXALIPLATIN [Suspect]
     Active Substance: OXALIPLATIN
     Indication: Gastric cancer
     Dosage: 100 MILLIGRAM (INIZIO TERAPIA 24/05/2023 - TERAPIA OGNI 14 GIORNI - 8 CICLO)
     Route: 042
     Dates: start: 20230901, end: 20230901
  2. FLUOROURACIL [Suspect]
     Active Substance: FLUOROURACIL
     Indication: Gastric cancer
     Dosage: 500 MILLIGRAM (INIZIO TERAPIA 24/05/2023 - TERAPIA OGNI 14 GIORNI - TERAPIA TRAMITE INFUSIONE IN BOL
     Route: 042
     Dates: start: 20230901, end: 20230901
  3. LEUCOVORIN [Concomitant]
     Active Substance: LEUCOVORIN\LEUCOVORIN CALCIUM
     Indication: Product used for unknown indication
     Dosage: 400 MILLIGRAM
     Route: 065

REACTIONS (2)
  - Neuropathy peripheral [Recovering/Resolving]
  - Off label use [Recovering/Resolving]

NARRATIVE: CASE EVENT DATE: 20230901
